FAERS Safety Report 19348413 (Version 1)
Quarter: 2021Q2

REPORT INFORMATION
  Report Type: Spontaneous
  Country: US (occurrence: US)
  Receive Date: 20210528
  Receipt Date: 20210528
  Transmission Date: 20210717
  Serious: Yes (Disabling)
  Sender: FDA-Public Use
  Company Number: None

PATIENT
  Age: 63 Year
  Sex: Female

DRUGS (12)
  1. MYALEPT [Suspect]
     Active Substance: METRELEPTIN
     Indication: LIPODYSTROPHY ACQUIRED
     Route: 058
  2. BACTERIOSTATIC WATER [Concomitant]
     Active Substance: WATER
  3. RESTASIS [Concomitant]
     Active Substance: CYCLOSPORINE
  4. ATORVASTATIN [Concomitant]
     Active Substance: ATORVASTATIN
  5. OMEGA?3 ACIDS [Concomitant]
     Active Substance: OMEGA-3 FATTY ACIDS
  6. UNKNOWN PROBIOTIC [Concomitant]
  7. LOSARTAN. [Concomitant]
     Active Substance: LOSARTAN
  8. LEVOTHYROXINE. [Concomitant]
     Active Substance: LEVOTHYROXINE
  9. NORTRIPTYLINE [Concomitant]
     Active Substance: NORTRIPTYLINE
  10. FENOFIBRATE. [Concomitant]
     Active Substance: FENOFIBRATE
  11. OMEPRAZOLE. [Concomitant]
     Active Substance: OMEPRAZOLE
  12. METOPROLOL. [Concomitant]
     Active Substance: METOPROLOL

REACTIONS (3)
  - Condition aggravated [None]
  - Radiculopathy [None]
  - Therapeutic product effect incomplete [None]
